FAERS Safety Report 7952607-2 (Version None)
Quarter: 2011Q4

REPORT INFORMATION
  Report Type: 
  Country: None (occurrence: None)
  Receive Date: 20111201
  Receipt Date: 20111123
  Transmission Date: 20120403
  Serious: Yes (Other)
  Sender: FDA-Public Use
  Company Number: US-CELGENEUS-163-21880-11080355

PATIENT
  Sex: Male

DRUGS (6)
  1. REVLIMID [Suspect]
     Indication: MULTIPLE MYELOMA
     Dosage: 10 MILLIGRAM
     Route: 048
     Dates: start: 20100801, end: 20110101
  2. HYDROCODONE [Concomitant]
     Indication: PAIN
     Dosage: 2-4
     Route: 048
  3. SENNA-S [Concomitant]
     Indication: CONSTIPATION
     Route: 065
  4. MEGACE [Concomitant]
     Route: 065
  5. ACYCLOVIR [Concomitant]
     Dosage: 200 MILLIGRAM
     Route: 065
  6. ACYCLOVIR [Concomitant]
     Indication: PROPHYLAXIS

REACTIONS (2)
  - SQUAMOUS CELL CARCINOMA OF SKIN [None]
  - MULTIPLE MYELOMA [None]
